FAERS Safety Report 5301771-2 (Version None)
Quarter: 2007Q2

REPORT INFORMATION
  Report Type: 
  Country: None (occurrence: None)
  Receive Date: 20070419
  Receipt Date: 20070412
  Transmission Date: 20071010
  Serious: Yes (Death, Life-Threatening, Hospitalization)
  Sender: FDA-Public Use
  Company Number: 2007PK00170

PATIENT
  Age: 39 Year
  Sex: Female
  Weight: 63 kg

DRUGS (11)
  1. BUPIVACAINE [Suspect]
     Indication: ANAESTHESIA
     Route: 037
  2. MEPIVACAIN [Interacting]
     Indication: ANAESTHESIA
     Route: 037
  3. PROPOFOL [Interacting]
     Indication: INTUBATION
  4. EPHEDRIN [Interacting]
     Indication: BLOOD PRESSURE MANAGEMENT
     Dosage: 150 MG
  5. OXYTOCIN [Interacting]
     Indication: POSTPARTUM HAEMORRHAGE
     Route: 042
  6. OXYTOCIN [Interacting]
     Route: 042
  7. METOCLOPRAMIDE [Interacting]
     Indication: PROCEDURAL NAUSEA
     Route: 042
  8. MIDAZOLAM HCL [Interacting]
     Indication: INTUBATION
  9. CEFAZOLIN [Concomitant]
     Indication: INFECTION PROPHYLAXIS
  10. AMIODARONE HCL [Concomitant]
     Indication: RESUSCITATION
  11. ATROPINE [Concomitant]
     Indication: HEART RATE DECREASED

REACTIONS (2)
  - CIRCULATORY COLLAPSE [None]
  - DRUG INTERACTION [None]
